FAERS Safety Report 18502676 (Version 1)
Quarter: 2020Q4

REPORT INFORMATION
  Report Type: Spontaneous
  Country: US (occurrence: US)
  Receive Date: 20201113
  Receipt Date: 20201113
  Transmission Date: 20210114
  Serious: Yes (Hospitalization, Other)
  Sender: FDA-Public Use
  Company Number: US-ASTRAZENECA-2020SF46293

PATIENT
  Sex: Female

DRUGS (4)
  1. VALIUM [Concomitant]
     Active Substance: DIAZEPAM
  2. ZOFRAN [Concomitant]
     Active Substance: ONDANSETRON HYDROCHLORIDE
  3. BRILINTA [Suspect]
     Active Substance: TICAGRELOR
     Dosage: UNKNOWN
     Route: 048
  4. PHENERGAN [Concomitant]
     Active Substance: PROMETHAZINE HYDROCHLORIDE

REACTIONS (21)
  - Mass [Not Recovered/Not Resolved]
  - Blood pressure decreased [Unknown]
  - Nausea [Not Recovered/Not Resolved]
  - Colitis [Not Recovered/Not Resolved]
  - Vomiting [Not Recovered/Not Resolved]
  - Skin discolouration [Not Recovered/Not Resolved]
  - Swelling [Not Recovered/Not Resolved]
  - Contusion [Not Recovered/Not Resolved]
  - Chest pain [Not Recovered/Not Resolved]
  - Gastrointestinal haemorrhage [Recovered/Resolved]
  - Illness [Not Recovered/Not Resolved]
  - Muscular weakness [Not Recovered/Not Resolved]
  - Hypophagia [Not Recovered/Not Resolved]
  - Nodule [Not Recovered/Not Resolved]
  - Weight decreased [Not Recovered/Not Resolved]
  - Loss of personal independence in daily activities [Not Recovered/Not Resolved]
  - Cardiac valve disease [Not Recovered/Not Resolved]
  - Retinal detachment [Not Recovered/Not Resolved]
  - Haemorrhage [Not Recovered/Not Resolved]
  - Stress [Not Recovered/Not Resolved]
  - Ill-defined disorder [Not Recovered/Not Resolved]
